FAERS Safety Report 18448126 (Version 2)
Quarter: 2025Q2

REPORT INFORMATION
  Report Type: Spontaneous
  Country: DE (occurrence: DE)
  Receive Date: 20201031
  Receipt Date: 20250624
  Transmission Date: 20250717
  Serious: Yes (Other)
  Sender: AUROBINDO
  Company Number: DE-002147023-PHHY2019DE162730

PATIENT
  Age: 36 Year
  Sex: Male

DRUGS (7)
  1. IMATINIB MESYLATE [Suspect]
     Active Substance: IMATINIB MESYLATE
     Indication: Infantile fibromatosis
     Dosage: 400 MILLIGRAM, ONCE A DAY
     Route: 065
  2. IMATINIB MESYLATE [Suspect]
     Active Substance: IMATINIB MESYLATE
     Indication: Inflammatory myofibroblastic tumour
     Dosage: 300 MILLIGRAM, ONCE A DAY,AFTER 1 MONTH
     Route: 065
  3. IMATINIB MESYLATE [Suspect]
     Active Substance: IMATINIB MESYLATE
     Indication: Leiomyoma
     Dosage: 200 MILLIGRAM, ONCE A DAY,AFTER 4 MONTHS
     Route: 065
  4. IMATINIB MESYLATE [Suspect]
     Active Substance: IMATINIB MESYLATE
     Indication: Spinal cord neoplasm
  5. IMATINIB MESYLATE [Suspect]
     Active Substance: IMATINIB MESYLATE
     Indication: Leiomyoma
  6. IMATINIB MESYLATE [Suspect]
     Active Substance: IMATINIB MESYLATE
     Indication: Systemic scleroderma
  7. IMATINIB MESYLATE [Suspect]
     Active Substance: IMATINIB MESYLATE
     Indication: Platelet-derived growth factor receptor gene mutation

REACTIONS (12)
  - Fatigue [Recovering/Resolving]
  - Dysgeusia [Recovering/Resolving]
  - Blood creatine phosphokinase increased [Recovering/Resolving]
  - Decreased appetite [Recovering/Resolving]
  - Muscle spasms [Recovering/Resolving]
  - Nausea [Recovering/Resolving]
  - Drug intolerance [Recovering/Resolving]
  - Therapeutic response decreased [Recovering/Resolving]
  - Product use in unapproved indication [Unknown]
  - Off label use [Unknown]
  - Drug ineffective [Unknown]
  - Drug effective for unapproved indication [Unknown]
